FAERS Safety Report 5507663-8 (Version None)
Quarter: 2007Q4

REPORT INFORMATION
  Report Type: 
  Country: None (occurrence: None)
  Receive Date: 20071105
  Receipt Date: 20071105
  Transmission Date: 20080405
  Serious: No
  Sender: FDA-Public Use
  Company Number: None

PATIENT
  Sex: Female
  Weight: 63.05 kg

DRUGS (1)
  1. CHANTIX [Suspect]
     Indication: TOBACCO ABUSE
     Dosage: 1MG DAILY PO
     Route: 048
     Dates: start: 20071008, end: 20071027

REACTIONS (3)
  - ABNORMAL DREAMS [None]
  - NAUSEA [None]
  - NIGHTMARE [None]
